FAERS Safety Report 24977449 (Version 1)
Quarter: 2025Q1

REPORT INFORMATION
  Report Type: Report from Study
  Country: US (occurrence: US)
  Receive Date: 20250217
  Receipt Date: 20250217
  Transmission Date: 20250408
  Serious: Yes (Other)
  Sender: TAKEDA
  Company Number: US-TAKEDA-US201939854

PATIENT
  Sex: Female
  Weight: 74.8 kg

DRUGS (29)
  1. HUMAN IMMUNOGLOBULIN G [Suspect]
     Active Substance: HUMAN IMMUNOGLOBULIN G
     Indication: Selective IgG subclass deficiency
     Dosage: 14 GRAM, 1/WEEK
     Dates: start: 20170905
  2. HUMAN IMMUNOGLOBULIN G [Suspect]
     Active Substance: HUMAN IMMUNOGLOBULIN G
     Indication: Combined immunodeficiency
     Dosage: 14 GRAM, 1/WEEK
     Dates: start: 20170907
  3. HUMAN IMMUNOGLOBULIN G [Suspect]
     Active Substance: HUMAN IMMUNOGLOBULIN G
     Dosage: 14 GRAM, Q2WEEKS
  4. COVID-19 VACCINE NOS [Suspect]
     Active Substance: COVID-19 VACCINE
     Indication: COVID-19 immunisation
  5. DIPHENHYDRAMINE [Concomitant]
     Active Substance: DIPHENHYDRAMINE
  6. DALIRESP [Concomitant]
     Active Substance: ROFLUMILAST
  7. ACYCLOVIR [Concomitant]
     Active Substance: ACYCLOVIR
  8. METOPROLOL SUCCINATE [Concomitant]
     Active Substance: METOPROLOL SUCCINATE
  9. EPINEPHRINE [Concomitant]
     Active Substance: EPINEPHRINE
  10. POTASSIUM CHLORIDE [Concomitant]
     Active Substance: POTASSIUM CHLORIDE
  11. FLUTICASONE PROPIONATE [Concomitant]
     Active Substance: FLUTICASONE PROPIONATE
  12. LIDOCAINE\PRILOCAINE [Concomitant]
     Active Substance: LIDOCAINE\PRILOCAINE
  13. ACETAMINOPHEN [Concomitant]
     Active Substance: ACETAMINOPHEN
  14. HYDROCHLOROTHIAZIDE [Concomitant]
     Active Substance: HYDROCHLOROTHIAZIDE
  15. MELOXICAM [Concomitant]
     Active Substance: MELOXICAM
  16. TYLENOL [Concomitant]
     Active Substance: ACETAMINOPHEN
  17. MUCINEX [Concomitant]
     Active Substance: GUAIFENESIN
  18. VENLAFAXINE HCL [Concomitant]
     Active Substance: VENLAFAXINE HYDROCHLORIDE
  19. FLONASE [Concomitant]
     Active Substance: FLUTICASONE PROPIONATE
  20. OMEPRAZOLE [Concomitant]
     Active Substance: OMEPRAZOLE
  21. FLUTICASONE [Concomitant]
     Active Substance: FLUTICASONE
  22. ADVIL [Concomitant]
     Active Substance: IBUPROFEN
  23. VENLAFAXINE [Concomitant]
     Active Substance: VENLAFAXINE HYDROCHLORIDE
  24. ASPIRIN [Concomitant]
     Active Substance: ASPIRIN
  25. HYDROMORPHONE [Concomitant]
     Active Substance: HYDROMORPHONE
  26. OXYCODONE AND ACETAMINOPHEN [Concomitant]
     Active Substance: ACETAMINOPHEN\OXYCODONE HYDROCHLORIDE
  27. LOVENOX [Concomitant]
     Active Substance: ENOXAPARIN SODIUM
  28. HYDROMORPHONE HCL [Concomitant]
     Active Substance: HYDROMORPHONE HYDROCHLORIDE
  29. DIPHENHYDRAMINE HYDROCHLORIDE [Concomitant]
     Active Substance: DIPHENHYDRAMINE HYDROCHLORIDE

REACTIONS (14)
  - Cataract [Unknown]
  - COVID-19 [Unknown]
  - Nasopharyngitis [Unknown]
  - Bronchitis [Unknown]
  - Inappropriate schedule of product administration [Unknown]
  - Sinusitis [Unknown]
  - Influenza [Unknown]
  - Illness [Unknown]
  - Immunoglobulins abnormal [Unknown]
  - Gastroenteritis viral [Unknown]
  - Plantar fasciitis [Unknown]
  - Product availability issue [Unknown]
  - Feeling abnormal [Unknown]
  - Fatigue [Unknown]
